FAERS Safety Report 19134420 (Version 1)
Quarter: 2021Q2

REPORT INFORMATION
  Report Type: Spontaneous
  Country: US (occurrence: US)
  Receive Date: 20210414
  Receipt Date: 20210414
  Transmission Date: 20210717
  Serious: No
  Sender: FDA-Public Use
  Company Number: None

PATIENT
  Age: 65 Year
  Sex: Female
  Weight: 58.5 kg

DRUGS (24)
  1. HYDROCORTISONE. [Concomitant]
     Active Substance: HYDROCORTISONE
  2. NALTREXONE [Concomitant]
     Active Substance: NALTREXONE
  3. FUROSEMIDE. [Concomitant]
     Active Substance: FUROSEMIDE
  4. UNDECYLEX [Concomitant]
  5. LAURICIDIN [Concomitant]
  6. FERROUS GLUCONATE [Concomitant]
     Active Substance: FERROUS GLUCONATE
  7. CUVITRU [Concomitant]
     Active Substance: HUMAN IMMUNOGLOBULIN G
  8. NATTOKINASE [Concomitant]
     Active Substance: NATTOKINASE
  9. MONTELUKAST [Concomitant]
     Active Substance: MONTELUKAST SODIUM
  10. FLORASTOR [Concomitant]
     Active Substance: SACCHAROMYCES CEREVISIAE
  11. PROGESTERONE. [Concomitant]
     Active Substance: PROGESTERONE
  12. LEVOTHYROXINE. [Concomitant]
     Active Substance: LEVOTHYROXINE
  13. VITAMIN C [Concomitant]
     Active Substance: ASCORBIC ACID
  14. INDOLE FORTE [Concomitant]
  15. ZYRTEC [Concomitant]
     Active Substance: CETIRIZINE HYDROCHLORIDE
  16. FIBRO FREEDOM [Concomitant]
  17. LIOTHYRONINE [Concomitant]
     Active Substance: LIOTHYRONINE
  18. VITAMIN D3 [Concomitant]
     Active Substance: CHOLECALCIFEROL
  19. MAGNESIUM CHELATE COMPLEX [Concomitant]
  20. ATENOLOL. [Concomitant]
     Active Substance: ATENOLOL
  21. ASPIRIN. [Concomitant]
     Active Substance: ASPIRIN
  22. DHEA [Concomitant]
     Active Substance: PRASTERONE
  23. PREGNENOLONE [Concomitant]
     Active Substance: PREGNENOLONE
  24. LANSOPRAZOLE DELAYED RELEASE [Suspect]
     Active Substance: LANSOPRAZOLE
     Indication: GASTROOESOPHAGEAL REFLUX DISEASE
     Dosage: ?          QUANTITY:1 CAPSULE(S);?
     Route: 048

REACTIONS (4)
  - Drug ineffective [None]
  - Vomiting [None]
  - Product physical issue [None]
  - Nausea [None]

NARRATIVE: CASE EVENT DATE: 20210401
